FAERS Safety Report 23293089 (Version 2)
Quarter: 2023Q4

REPORT INFORMATION
  Report Type: Report from Study
  Country: US (occurrence: US)
  Receive Date: 20231213
  Receipt Date: 20231227
  Transmission Date: 20240110
  Serious: Yes (Hospitalization)
  Sender: FDA-Public Use
  Company Number: US-SEATTLE GENETICS-2023SGN12958

PATIENT
  Sex: Female

DRUGS (3)
  1. TUCATINIB [Suspect]
     Active Substance: TUCATINIB
     Indication: Breast cancer female
     Dosage: 2 TABLETS ONCE DAILY
     Route: 065
  2. TUCATINIB [Suspect]
     Active Substance: TUCATINIB
     Dosage: UNK
     Route: 065
  3. CAPECITABINE [Suspect]
     Active Substance: CAPECITABINE
     Indication: Breast cancer female
     Dosage: UNK
     Route: 065

REACTIONS (6)
  - Electrolyte imbalance [Unknown]
  - Fluid replacement [Unknown]
  - Vomiting [Not Recovered/Not Resolved]
  - Blood potassium decreased [Unknown]
  - Incorrect dose administered [Unknown]
  - Nausea [Not Recovered/Not Resolved]
